FAERS Safety Report 6101499-5 (Version None)
Quarter: 2009Q1

REPORT INFORMATION
  Report Type: 
  Country: None (occurrence: None)
  Receive Date: 20090304
  Receipt Date: 20090224
  Transmission Date: 20090719
  Serious: Yes (Hospitalization, Other)
  Sender: FDA-Public Use
  Company Number: US-BAYER-200910053NA

PATIENT
  Age: 22 Year
  Sex: Female
  Weight: 80 kg

DRUGS (3)
  1. MIRENA [Suspect]
     Indication: CONTRACEPTION
     Route: 015
     Dates: start: 20081203, end: 20081224
  2. SYNTHROID [Concomitant]
     Indication: HYPOTHYROIDISM
     Route: 048
  3. AMBIEN [Concomitant]
     Route: 048
     Dates: end: 20081231

REACTIONS (8)
  - DEEP VEIN THROMBOSIS [None]
  - DYSSTASIA [None]
  - ERYTHEMA [None]
  - MUSCLE TIGHTNESS [None]
  - OEDEMA PERIPHERAL [None]
  - PAIN IN EXTREMITY [None]
  - PYREXIA [None]
  - SKIN WARM [None]
